FAERS Safety Report 5121862-9 (Version None)
Quarter: 2006Q4

REPORT INFORMATION
  Report Type: 
  Country: None (occurrence: None)
  Receive Date: 20061003
  Receipt Date: 20060803
  Transmission Date: 20070319
  Serious: Yes (Hospitalization)
  Sender: FDA-Public Use
  Company Number: 805#9#2006-00088

PATIENT
  Age: 79 Year
  Sex: Male

DRUGS (7)
  1. ALPROSTADIL [Suspect]
     Indication: ARTERIOSCLEROSIS OBLITERANS
     Dosage: 40 MCG (40 MCG 1 IN 1 DAY(S); INTRAVENOUS DRIP
     Route: 041
     Dates: start: 20051115, end: 20051118
  2. TELMISARTAN [Concomitant]
  3. NIFEDIPIN (NIFEDIPINE) [Concomitant]
  4. PRAVASTATIN SODIUM [Concomitant]
  5. FAMOTIDINE [Concomitant]
  6. SARPOGRELATE HYDROCHLORIDE [Concomitant]
  7. NATEGLINIDE [Concomitant]

REACTIONS (6)
  - BLOOD URINE PRESENT [None]
  - GLUCOSE URINE PRESENT [None]
  - HERPES ZOSTER [None]
  - NEUROGENIC BLADDER [None]
  - PROTEIN URINE PRESENT [None]
  - WHITE BLOOD CELL COUNT DECREASED [None]
